FAERS Safety Report 10431871 (Version 2)
Quarter: 2014Q4

REPORT INFORMATION
  Report Type: Spontaneous
  Country: FR (occurrence: FR)
  Receive Date: 20140905
  Receipt Date: 20141006
  Transmission Date: 20150528
  Serious: Yes (Other)
  Sender: FDA-Public Use
  Company Number: FR-ROCHE-1458353

PATIENT
  Age: 45 Year
  Sex: Female

DRUGS (15)
  1. SPASFON (FRANCE) [Concomitant]
     Active Substance: PHLOROGLUCINOL
  2. ALPRAZOLAM. [Concomitant]
     Active Substance: ALPRAZOLAM
     Route: 065
  3. FOLIC ACID. [Concomitant]
     Active Substance: FOLIC ACID
  4. LAROXYL [Concomitant]
     Active Substance: AMITRIPTYLINE
     Dosage: 15 DROPS
     Route: 065
  5. AERIUS [Concomitant]
     Active Substance: DESLORATADINE
  6. ALIMTA [Suspect]
     Active Substance: PEMETREXED DISODIUM
     Indication: ADENOCARCINOMA
     Route: 042
     Dates: start: 20140210, end: 20140728
  7. PRIMPERAN [Concomitant]
     Active Substance: METOCLOPRAMIDE HYDROCHLORIDE
     Route: 065
  8. MACROGOL [Concomitant]
     Active Substance: POLYETHYLENE GLYCOLS
  9. LARGACTIL [Concomitant]
     Active Substance: CHLORPROMAZINE
  10. AVASTIN [Suspect]
     Active Substance: BEVACIZUMAB
     Indication: ADENOCARCINOMA
     Route: 042
     Dates: start: 20140324, end: 20140728
  11. CARBOPLATIN. [Suspect]
     Active Substance: CARBOPLATIN
     Indication: ADENOCARCINOMA
     Route: 042
     Dates: start: 20140210, end: 20140505
  12. PREDNISONE. [Concomitant]
     Active Substance: PREDNISONE
     Route: 065
  13. OXYCONTIN [Concomitant]
     Active Substance: OXYCODONE HYDROCHLORIDE
     Route: 065
  14. OXYNORM [Concomitant]
     Active Substance: OXYCODONE HYDROCHLORIDE
  15. LEVETIRACETAM. [Concomitant]
     Active Substance: LEVETIRACETAM
     Route: 065

REACTIONS (2)
  - Arthralgia [Recovering/Resolving]
  - Oedema [Recovering/Resolving]
